FAERS Safety Report 14100785 (Version 1)
Quarter: 2017Q4

REPORT INFORMATION
  Report Type: Spontaneous
  Country: MY (occurrence: MY)
  Receive Date: 20171018
  Receipt Date: 20171018
  Transmission Date: 20180321
  Serious: Yes (Death, Other)
  Sender: FDA-Public Use
  Company Number: MY-ALEMBIC PHARMACUETICALS LIMITED-2017SCAL000807

PATIENT

DRUGS (2)
  1. ADALIMUMAB [Suspect]
     Active Substance: ADALIMUMAB
     Indication: RHEUMATOID ARTHRITIS
     Dosage: UNK
  2. LEFLUNOMIDE. [Suspect]
     Active Substance: LEFLUNOMIDE
     Indication: RHEUMATOID ARTHRITIS
     Dosage: UNK

REACTIONS (7)
  - Postpartum haemorrhage [Fatal]
  - Disseminated intravascular coagulation [Fatal]
  - Stillbirth [Unknown]
  - Maternal exposure during pregnancy [Unknown]
  - Urosepsis [Unknown]
  - Sepsis [Fatal]
  - Maternal exposure before pregnancy [Unknown]
